FAERS Safety Report 7316415-8 (Version None)
Quarter: 2011Q1

REPORT INFORMATION
  Report Type: 
  Country: None (occurrence: None)
  Receive Date: 20110225
  Receipt Date: 20110216
  Transmission Date: 20110831
  Serious: Yes (Hospitalization, Other)
  Sender: FDA-Public Use
  Company Number: US-MERCK-1010USA01168

PATIENT
  Age: 80 Year
  Sex: Female

DRUGS (1)
  1. FOSAMAX [Suspect]
     Indication: OSTEOPOROSIS
     Route: 048
     Dates: start: 20031211, end: 20100101

REACTIONS (19)
  - HYPOKALAEMIA [None]
  - LOW TURNOVER OSTEOPATHY [None]
  - DIVERTICULUM [None]
  - HAEMORRHOIDS [None]
  - FEMUR FRACTURE [None]
  - CHOLELITHIASIS [None]
  - DIARRHOEA INFECTIOUS [None]
  - HYPERTRIGLYCERIDAEMIA [None]
  - VOMITING [None]
  - NEUROPATHY PERIPHERAL [None]
  - SYNCOPE [None]
  - FALL [None]
  - BACK PAIN [None]
  - NASOPHARYNGITIS [None]
  - BLOOD CHOLESTEROL INCREASED [None]
  - SPINAL COLUMN STENOSIS [None]
  - TRANSIENT ISCHAEMIC ATTACK [None]
  - SCIATICA [None]
  - SCOLIOSIS [None]
